FAERS Safety Report 9763005 (Version 1)
Quarter: 2013Q4

REPORT INFORMATION
  Report Type: Spontaneous
  Country: US (occurrence: US)
  Receive Date: 20131216
  Receipt Date: 20131216
  Transmission Date: 20140711
  Serious: No
  Sender: FDA-Public Use
  Company Number: US-BIOGENIDEC-2013BI108221

PATIENT
  Sex: Male

DRUGS (5)
  1. TECFIDERA [Suspect]
     Indication: MULTIPLE SCLEROSIS
     Route: 048
     Dates: start: 201310
  2. PRAVASTATIN [Concomitant]
  3. PANTOPRAZOLE [Concomitant]
  4. ASPIRIN [Concomitant]
  5. VIT D [Concomitant]

REACTIONS (2)
  - Headache [Unknown]
  - Influenza like illness [Unknown]
